FAERS Safety Report 9459853 (Version 2)
Quarter: 2013Q3

REPORT INFORMATION
  Report Type: Report from Study
  Country: CA (occurrence: CA)
  Receive Date: 20130815
  Receipt Date: 20130827
  Transmission Date: 20140515
  Serious: Yes (Hospitalization, Other)
  Sender: FDA-Public Use
  Company Number: CA-JNJFOC-20130713762

PATIENT
  Sex: Female
  Weight: 58.2 kg

DRUGS (2)
  1. REMICADE [Suspect]
     Indication: COLITIS ULCERATIVE
     Route: 042
     Dates: start: 2013
  2. REMICADE [Suspect]
     Indication: COLITIS ULCERATIVE
     Route: 042
     Dates: start: 20130604

REACTIONS (5)
  - Malaise [Unknown]
  - Haemoglobin decreased [Unknown]
  - Pruritus [Unknown]
  - Infusion related reaction [Unknown]
  - Hypotension [Unknown]
